FAERS Safety Report 6579970-1 (Version None)
Quarter: 2010Q1

REPORT INFORMATION
  Report Type: 
  Country: None (occurrence: None)
  Receive Date: 20100212
  Receipt Date: 20100208
  Transmission Date: 20100710
  Serious: Yes (Life-Threatening, Hospitalization)
  Sender: FDA-Public Use
  Company Number: BE-PFIZER INC-2010017952

PATIENT
  Age: 66 Year
  Sex: Male
  Weight: 71.7 kg

DRUGS (30)
  1. IRINOTECAN HCL [Suspect]
     Indication: COLORECTAL CANCER METASTATIC
     Dosage: 180 MG/M2, CYCLIC
     Route: 042
     Dates: start: 20041221, end: 20050607
  2. FLUOROURACIL [Suspect]
     Indication: COLORECTAL CANCER METASTATIC
     Dosage: 2240 MG/M2, CYCLIC
     Route: 042
     Dates: start: 20041221, end: 20050607
  3. CETUXIMAB [Suspect]
     Indication: COLORECTAL CANCER METASTATIC
     Dosage: 250 MG/M2, WEEKLY
     Route: 042
     Dates: start: 20041221, end: 20050614
  4. FOLINIC ACID [Suspect]
     Indication: COLORECTAL CANCER METASTATIC
     Dosage: 200 MG/M2, CYCLIC
     Route: 042
     Dates: start: 20041221, end: 20050607
  5. NEOMYCIN [Concomitant]
  6. NYSTATIN [Concomitant]
  7. CITALOPRAM [Concomitant]
  8. NADROPARIN CALCIUM [Concomitant]
  9. ONDANSETRON [Concomitant]
  10. METHYLPREDNISOLONE [Concomitant]
  11. METOCLOPRAMIDE [Concomitant]
  12. CETIRIZINE HYDROCHLORIDE [Concomitant]
  13. ATROPINE SULFATE [Concomitant]
  14. VALPROATE SODIUM [Concomitant]
  15. THEOPHYLLINE [Concomitant]
  16. ALPRAZOLAM [Concomitant]
  17. RANITIDINE [Concomitant]
  18. DUOVENT [Concomitant]
  19. CHLORHEXIDINE [Concomitant]
  20. DOMPERIDONE [Concomitant]
  21. METRONIDAZOLE [Concomitant]
  22. DARBEPOETIN ALFA [Concomitant]
  23. MACROGOL [Concomitant]
  24. BISACODYL [Concomitant]
  25. OMEPRAZOLE [Concomitant]
  26. LEVOFLOXACIN [Concomitant]
  27. PARACETAMOL [Concomitant]
  28. ORNIDAZOLE [Concomitant]
  29. PANTOPRAZOLE [Concomitant]
  30. NEOSTIGMINE METILSULFATE [Concomitant]

REACTIONS (2)
  - CARDIAC FAILURE ACUTE [None]
  - PULMONARY OEDEMA [None]
